FAERS Safety Report 12563321 (Version 1)
Quarter: 2016Q3

REPORT INFORMATION
  Report Type: Not Available
  Country: JP (occurrence: JP)
  Receive Date: 20160715
  Receipt Date: 20160715
  Transmission Date: 20161109
  Serious: Yes (Other)
  Sender: FDA-Public Use
  Company Number: JP-ANIPHARMA-2016-JP-000006

PATIENT
  Age: 78 Year
  Sex: Male

DRUGS (11)
  1. OXALIPLATIN. [Suspect]
     Active Substance: OXALIPLATIN
     Dosage: 100 MG PER SQUARE METER
     Route: 042
  2. MECOBALAMIN [Concomitant]
     Active Substance: METHYLCOBALAMIN
  3. SPIRONOLACTONE. [Suspect]
     Active Substance: SPIRONOLACTONE
  4. ALLOPURINOL. [Concomitant]
     Active Substance: ALLOPURINOL
  5. FOSAPREPITANT [Concomitant]
     Active Substance: FOSAPREPITANT
     Route: 042
  6. LIMAPROST ALPHADEX [Concomitant]
     Active Substance: LIMAPROST
  7. DEXAMETHASONE. [Concomitant]
     Active Substance: DEXAMETHASONE
     Route: 051
  8. DOMPERIDONE [Concomitant]
     Active Substance: DOMPERIDONE
  9. PERINDOPRIL ERBUMINE (NON-SPECIFIC) [Suspect]
     Active Substance: PERINDOPRIL ERBUMINE
     Dosage: UNKNOWN
     Route: 048
  10. TEGAFUR-GIMERACIL-OTERACIL [Suspect]
     Active Substance: GIMERACIL\OTERACIL\TEGAFUR
     Dosage: 100 MG
     Route: 048
  11. PALONOSETRON [Concomitant]
     Active Substance: PALONOSETRON
     Route: 042

REACTIONS (1)
  - Inappropriate antidiuretic hormone secretion [Unknown]
